FAERS Safety Report 10548114 (Version 2)
Quarter: 2015Q1

REPORT INFORMATION
  Report Type: Spontaneous
  Country: US (occurrence: US)
  Receive Date: 20141028
  Receipt Date: 20150127
  Transmission Date: 20150720
  Serious: No
  Sender: FDA-Public Use
  Company Number: US-LEO PHARMA-230286

PATIENT
  Sex: Female

DRUGS (1)
  1. PICATO [Suspect]
     Active Substance: INGENOL MEBUTATE
     Indication: ACTINIC KERATOSIS
     Route: 061
     Dates: start: 20141010

REACTIONS (5)
  - Eye swelling [Recovered/Resolved]
  - Application site scab [Recovered/Resolved]
  - Application site pain [Recovered/Resolved]
  - Application site swelling [Recovered/Resolved]
  - Drug administered at inappropriate site [Unknown]

NARRATIVE: CASE EVENT DATE: 20141010
